FAERS Safety Report 6508788 (Version 2)
Quarter: 2020Q3

REPORT INFORMATION
  Report Type: Report from Study
  Country: US (occurrence: US)
  Receive Date: 20071219
  Receipt Date: 20081027
  Transmission Date: 20201104
  Serious: Yes (Other)
  Sender: FDA-Public Use
  Company Number: US-JNJFOC-20071110601

PATIENT
  Age: 45 Year
  Sex: Female
  Weight: 88 kg

DRUGS (2)
  1. PROPULSID [Suspect]
     Active Substance: CISAPRIDE
     Indication: GASTROOESOPHAGEAL REFLUX DISEASE
     Route: 048
  2. PROPULSID [Suspect]
     Active Substance: CISAPRIDE
     Route: 048

REACTIONS (1)
  - Electrocardiogram QT prolonged [Recovered/Resolved]

NARRATIVE: CASE EVENT DATE: 20011001
